FAERS Safety Report 6384615-X (Version None)
Quarter: 2009Q4

REPORT INFORMATION
  Report Type: 
  Country: None (occurrence: None)
  Receive Date: 20091001
  Receipt Date: 20090921
  Transmission Date: 20100525
  Serious: Yes (Disabling, Other)
  Sender: FDA-Public Use
  Company Number: PHHY2009NZ37755

PATIENT
  Sex: Male
  Weight: 75 kg

DRUGS (5)
  1. GLEEVEC [Suspect]
     Indication: GASTROINTESTINAL STROMAL TUMOUR
     Dosage: 400 MG, QD
     Route: 048
     Dates: start: 20081211
  2. GLEEVEC [Interacting]
     Dosage: 400 MG, BID
     Route: 048
  3. RIFAMPICIN [Interacting]
     Indication: TUBERCULOSIS
     Dosage: UNK
  4. ISONIAZID [Concomitant]
     Indication: TUBERCULOSIS
     Dosage: UNK
  5. PYRAZINAMIDE [Concomitant]
     Indication: TUBERCULOSIS
     Dosage: UNK

REACTIONS (2)
  - DRUG INTERACTION [None]
  - TUBERCULOSIS [None]
